FAERS Safety Report 11254098 (Version 2)
Quarter: 2015Q3

REPORT INFORMATION
  Report Type: Spontaneous
  Country: GB (occurrence: GB)
  Receive Date: 20150709
  Receipt Date: 20150820
  Transmission Date: 20151125
  Serious: Yes (Death)
  Sender: FDA-Public Use
  Company Number: GB-TEVA-576111ACC

PATIENT
  Age: 44 Year
  Sex: Male

DRUGS (3)
  1. BOTOX [Suspect]
     Active Substance: ONABOTULINUMTOXINA
     Indication: HYPERTONIC BLADDER
  2. BOTOX [Suspect]
     Active Substance: ONABOTULINUMTOXINA
     Indication: BLADDER DISORDER
     Dosage: 200 IU, SINGLE
     Route: 065
     Dates: start: 20150608, end: 20150608
  3. TRIMETHOPRIM. [Suspect]
     Active Substance: TRIMETHOPRIM
     Indication: URINARY TRACT INFECTION
     Dosage: UNKNOWN
     Route: 065
     Dates: start: 20150608, end: 20150610

REACTIONS (1)
  - Sudden death [Fatal]

NARRATIVE: CASE EVENT DATE: 20150610
